FAERS Safety Report 5051507-8 (Version None)
Quarter: 2006Q3

REPORT INFORMATION
  Report Type: 
  Country: None (occurrence: None)
  Receive Date: 20060711
  Receipt Date: 20060627
  Transmission Date: 20061208
  Serious: Yes (Other)
  Sender: FDA-Public Use
  Company Number: 8016846

PATIENT
  Age: 42 Year
  Sex: Male

DRUGS (4)
  1. KEPPRA [Suspect]
     Indication: CONVULSION
     Dosage: 1000 MG 2/D PO
     Route: 048
     Dates: start: 20030101
  2. ABILIFY [Suspect]
     Indication: AGITATION
     Dosage: 10 MG /D PO
     Route: 048
     Dates: start: 20041001
  3. LEXAPRO [Suspect]
     Indication: DEPRESSION
     Dosage: D PO
     Route: 048
     Dates: start: 20041001
  4. CARBATROL [Concomitant]

REACTIONS (9)
  - AGGRESSION [None]
  - AGITATION [None]
  - DEPRESSION [None]
  - DYSSTASIA [None]
  - LETHARGY [None]
  - MEMORY IMPAIRMENT [None]
  - SEDATION [None]
  - STATUS EPILEPTICUS [None]
  - TRAUMATIC BRAIN INJURY [None]
